FAERS Safety Report 19630284 (Version 1)
Quarter: 2021Q3

REPORT INFORMATION
  Report Type: Spontaneous
  Country: AU (occurrence: AU)
  Receive Date: 20210729
  Receipt Date: 20210729
  Transmission Date: 20211014
  Serious: Yes (Other)
  Sender: FDA-Public Use
  Company Number: AU-CLINIGEN GROUP PLC/ CLINIGEN HEALTHCARE LTD-AU-CLGN-21-00408

PATIENT
  Age: 16 Year
  Sex: Female

DRUGS (4)
  1. DOXORUBICIN [Concomitant]
     Active Substance: DOXORUBICIN
     Indication: NUT MIDLINE CARCINOMA
  2. DEXRAZOXANE HCL [Suspect]
     Active Substance: DEXRAZOXANE HYDROCHLORIDE
     Indication: CHEMOTHERAPY CARDIOTOXICITY ATTENUATION
  3. 5?FLUOROURACIL [Concomitant]
     Active Substance: FLUOROURACIL
     Indication: NUT MIDLINE CARCINOMA
  4. IFOSFAMIDE. [Concomitant]
     Active Substance: IFOSFAMIDE
     Indication: NUT MIDLINE CARCINOMA
     Route: 042

REACTIONS (1)
  - Off label use [Unknown]
